FAERS Safety Report 7170672-X (Version None)
Quarter: 2010Q4

REPORT INFORMATION
  Report Type: 
  Country: None (occurrence: None)
  Receive Date: 20101206
  Receipt Date: 20101119
  Transmission Date: 20110411
  Serious: Yes (Other)
  Sender: FDA-Public Use
  Company Number: AUR-APL-2010-02569

PATIENT
  Age: 73 Year
  Sex: Male
  Weight: 110.66 kg

DRUGS (10)
  1. METFORMIN [Suspect]
     Indication: DIABETES MELLITUS
     Dosage: 1000MG-BID-ORAL
     Route: 048
     Dates: end: 20100831
  2. LANTUS [Suspect]
     Indication: DIABETES MELLITUS
     Dosage: 50IU-DAILY
  3. SITAGLIPTIN [Concomitant]
  4. HUMALOG [Concomitant]
  5. ACTOS [Concomitant]
  6. DIGOXIN [Concomitant]
  7. LOVASTATIN [Concomitant]
  8. ATENOLOL [Concomitant]
  9. VITAMIN D [Concomitant]
  10. ASCORBIC ACID [Concomitant]

REACTIONS (6)
  - BLOOD GLUCOSE INCREASED [None]
  - CREATININE RENAL CLEARANCE DECREASED [None]
  - HEART RATE IRREGULAR [None]
  - HYPERTENSION [None]
  - OEDEMA [None]
  - PROSTATOMEGALY [None]
